FAERS Safety Report 16151123 (Version 1)
Quarter: 2019Q2

REPORT INFORMATION
  Report Type: Spontaneous
  Country: DE (occurrence: DE)
  Receive Date: 20190402
  Receipt Date: 20190402
  Transmission Date: 20190711
  Serious: Yes (Life-Threatening, Hospitalization, Other)
  Sender: FDA-Public Use
  Company Number: DE-MYLANLABS-2019M1031020

PATIENT
  Age: 30 Year
  Sex: Male

DRUGS (10)
  1. FLUPENTIXOL [Interacting]
     Active Substance: FLUPENTIXOL
     Indication: SCHIZOPHRENIA
     Dosage: 12 MG, QD
  2. QUETIAPINE. [Concomitant]
     Active Substance: QUETIAPINE
     Indication: SCHIZOPHRENIA
     Dosage: UNK
  3. CLOZAPINE. [Interacting]
     Active Substance: CLOZAPINE
     Dosage: 675 MG, QD
  4. FLUPENTIXOL [Interacting]
     Active Substance: FLUPENTIXOL
     Dosage: 2 MILLIGRAM, QD
  5. CLOZAPINE. [Suspect]
     Active Substance: CLOZAPINE
     Indication: SCHIZOPHRENIA
     Dosage: 25 MG, QD
  6. AMISULPRIDE [Concomitant]
     Active Substance: AMISULPRIDE
     Indication: SCHIZOPHRENIA
     Dosage: UNK
  7. OLANZAPINE. [Concomitant]
     Active Substance: OLANZAPINE
     Indication: SCHIZOPHRENIA
     Dosage: UNK
  8. CLOZAPINE. [Interacting]
     Active Substance: CLOZAPINE
     Dosage: 400 MILLIGRAM, QD
  9. PIRENZEPINE [Concomitant]
     Active Substance: PIRENZEPINE
     Indication: SALIVARY HYPERSECRETION
     Dosage: 150 MG, QD
  10. CLOZAPINE. [Interacting]
     Active Substance: CLOZAPINE
     Dosage: 450 MG, QD

REACTIONS (4)
  - Drug interaction [Recovering/Resolving]
  - Drug level decreased [Recovering/Resolving]
  - Schizophrenia [Recovered/Resolved]
  - Salivary hypersecretion [Unknown]
